FAERS Safety Report 22319406 (Version 1)
Quarter: 2023Q2

REPORT INFORMATION
  Report Type: Spontaneous
  Country: US (occurrence: US)
  Receive Date: 20230515
  Receipt Date: 20230515
  Transmission Date: 20230721
  Serious: Yes (Hospitalization, Other)
  Sender: FDA-Public Use
  Company Number: US-AUROBINDO-AUR-APL-2023-035886

PATIENT
  Age: 78 Year
  Sex: Male

DRUGS (4)
  1. CEFADROXIL [Suspect]
     Active Substance: CEFADROXIL
     Indication: Lymphangitis
     Dosage: UNK
     Route: 065
  2. WARFARIN SODIUM [Suspect]
     Active Substance: WARFARIN SODIUM
     Indication: Deep vein thrombosis
     Dosage: UNK
     Route: 065
  3. COTRIMOXAZOLE [Suspect]
     Active Substance: SULFAMETHOXAZOLE\TRIMETHOPRIM
     Indication: Lymphangitis
     Dosage: UNK
     Route: 065
  4. CEFTRIAXONE [Suspect]
     Active Substance: CEFTRIAXONE
     Indication: Lymphangitis
     Dosage: 1 GRAM
     Route: 030

REACTIONS (3)
  - Nephritis [Unknown]
  - Nephropathy [Unknown]
  - International normalised ratio increased [Recovered/Resolved]
